FAERS Safety Report 18940277 (Version 2)
Quarter: 2021Q1

REPORT INFORMATION
  Report Type: Other
  Country: US (occurrence: US)
  Receive Date: 20210225
  Receipt Date: 20210309
  Transmission Date: 20210420
  Serious: No
  Sender: FDA-Public Use
  Company Number: US-ROCHE-2769345

PATIENT
  Age: 16 Year
  Sex: Male
  Weight: 49.03 kg

DRUGS (8)
  1. NUTROPIN [Suspect]
     Active Substance: SOMATROPIN
     Dosage: NUTROPIN PREFILLED PEN 10MG/2ML
     Route: 058
  2. NUTROPIN [Suspect]
     Active Substance: SOMATROPIN
  3. NUTROPIN [Suspect]
     Active Substance: SOMATROPIN
     Indication: HYPOPITUITARISM
     Dosage: NUTROPIN PREFILLED PEN 10MG/2ML
     Route: 058
     Dates: start: 2016
  4. NUTROPIN [Suspect]
     Active Substance: SOMATROPIN
     Dosage: NUTROPIN PREFILLED PEN 10MG/2ML?UNDER THE SKIN
     Route: 058
     Dates: start: 20190806
  5. NUTROPIN [Suspect]
     Active Substance: SOMATROPIN
  6. NUTROPIN [Suspect]
     Active Substance: SOMATROPIN
  7. NUTROPIN [Suspect]
     Active Substance: SOMATROPIN
     Indication: SHORT STATURE HOMEOBOX GENE MUTATION
     Dosage: NUTROPIN PREFILLED PEN 20 MG/2 ML
     Route: 058
  8. NUTROPIN [Suspect]
     Active Substance: SOMATROPIN

REACTIONS (5)
  - Exposure via skin contact [Unknown]
  - Device leakage [Unknown]
  - No adverse event [Unknown]
  - Off label use [Unknown]
  - Intentional product use issue [Unknown]

NARRATIVE: CASE EVENT DATE: 2016
